FAERS Safety Report 9676209 (Version 1)
Quarter: 2013Q4

REPORT INFORMATION
  Report Type: Spontaneous
  Country: US (occurrence: US)
  Receive Date: 20131107
  Receipt Date: 20131107
  Transmission Date: 20140711
  Serious: Yes (Hospitalization, Other)
  Sender: FDA-Public Use
  Company Number: US-ELI_LILLY_AND_COMPANY-US201310009972

PATIENT
  Sex: Male

DRUGS (2)
  1. HUMULIN 30% REGULAR, 70% NPH [Suspect]
     Indication: DIABETES MELLITUS
     Dosage: 20 U, EACH MORNING
     Route: 065
     Dates: start: 1998
  2. HUMULIN 30% REGULAR, 70% NPH [Suspect]
     Dosage: 10 U, EACH EVENING
     Route: 065
     Dates: start: 1998

REACTIONS (11)
  - Cardiac failure congestive [Unknown]
  - Chronic obstructive pulmonary disease [Unknown]
  - Arterial occlusive disease [Unknown]
  - Neuropathy peripheral [Unknown]
  - Schizophrenia [Unknown]
  - Delusional perception [Unknown]
  - Depressed mood [Unknown]
  - Chest discomfort [Unknown]
  - Weight increased [Unknown]
  - Fatigue [Unknown]
  - Inappropriate schedule of drug administration [Unknown]
